FAERS Safety Report 9203068 (Version 2)
Quarter: 2013Q2

REPORT INFORMATION
  Report Type: Spontaneous
  Country: AR (occurrence: AR)
  Receive Date: 20130402
  Receipt Date: 20130506
  Transmission Date: 20140414
  Serious: Yes (Other)
  Sender: FDA-Public Use
  Company Number: AR-AMGEN-ARGSP2013021940

PATIENT
  Age: 68 Year
  Sex: Female

DRUGS (4)
  1. ENBREL [Suspect]
     Indication: RHEUMATOID ARTHRITIS
     Dosage: 50 MG, WEEKLY
     Dates: start: 20130213
  2. LEFLUNOMIDE [Concomitant]
     Dosage: UNKNOWN
  3. DELTISONA B                        /00049601/ [Concomitant]
     Dosage: UNKNOWN
  4. IBUPIRAC                           /00109201/ [Concomitant]
     Dosage: UNKNOWN

REACTIONS (3)
  - Visual acuity reduced [Not Recovered/Not Resolved]
  - Dizziness [Recovered/Resolved]
  - Lacrimal disorder [Not Recovered/Not Resolved]
